FAERS Safety Report 11762421 (Version 1)
Quarter: 2015Q4

REPORT INFORMATION
  Report Type: Report from Study
  Country: US (occurrence: US)
  Receive Date: 20151120
  Receipt Date: 20151120
  Transmission Date: 20160304
  Serious: Yes (Death, Other)
  Sender: FDA-Public Use
  Company Number: US-BAXTER-2015BAX062971

PATIENT

DRUGS (16)
  1. CYTARABINE. [Suspect]
     Active Substance: CYTARABINE
     Indication: PROPHYLAXIS
  2. IMATINIB [Suspect]
     Active Substance: IMATINIB
     Indication: PHILADELPHIA CHROMOSOME POSITIVE
     Route: 048
  3. CYCLOPHOSPHAMIDE FOR INJECTION, USP [Suspect]
     Active Substance: CYCLOPHOSPHAMIDE
     Indication: ACUTE LYMPHOCYTIC LEUKAEMIA
  4. DEXAMETHASONE. [Suspect]
     Active Substance: DEXAMETHASONE
     Indication: ACUTE LYMPHOCYTIC LEUKAEMIA
  5. METHOTREXATE [Suspect]
     Active Substance: METHOTREXATE
     Indication: PHILADELPHIA CHROMOSOME POSITIVE
     Dosage: HIGH DOSE
     Route: 065
  6. METHOTREXATE [Suspect]
     Active Substance: METHOTREXATE
     Indication: PROPHYLAXIS
  7. IMATINIB [Suspect]
     Active Substance: IMATINIB
     Indication: ACUTE LYMPHOCYTIC LEUKAEMIA
  8. CYTARABINE. [Suspect]
     Active Substance: CYTARABINE
     Indication: PHILADELPHIA CHROMOSOME POSITIVE
     Dosage: HIGH DOSE
     Route: 065
  9. METHOTREXATE [Suspect]
     Active Substance: METHOTREXATE
     Indication: ACUTE LYMPHOCYTIC LEUKAEMIA
     Route: 037
  10. CYCLOPHOSPHAMIDE FOR INJECTION, USP [Suspect]
     Active Substance: CYCLOPHOSPHAMIDE
     Indication: PHILADELPHIA CHROMOSOME POSITIVE
     Route: 065
  11. ADRIAMYCIN [Suspect]
     Active Substance: DOXORUBICIN HYDROCHLORIDE
     Indication: PHILADELPHIA CHROMOSOME POSITIVE
     Route: 065
  12. ONCOVIN [Suspect]
     Active Substance: VINCRISTINE SULFATE
     Indication: PHILADELPHIA CHROMOSOME POSITIVE
     Route: 065
  13. DEXAMETHASONE. [Suspect]
     Active Substance: DEXAMETHASONE
     Indication: PHILADELPHIA CHROMOSOME POSITIVE
     Route: 065
  14. CYTARABINE. [Suspect]
     Active Substance: CYTARABINE
     Indication: ACUTE LYMPHOCYTIC LEUKAEMIA
     Route: 037
  15. ADRIAMYCIN [Suspect]
     Active Substance: DOXORUBICIN HYDROCHLORIDE
     Indication: ACUTE LYMPHOCYTIC LEUKAEMIA
  16. ONCOVIN [Suspect]
     Active Substance: VINCRISTINE SULFATE
     Indication: ACUTE LYMPHOCYTIC LEUKAEMIA

REACTIONS (2)
  - Therapy responder [Unknown]
  - Death [Fatal]
